FAERS Safety Report 12437677 (Version 1)
Quarter: 2016Q2

REPORT INFORMATION
  Report Type: Spontaneous
  Country: US (occurrence: US)
  Receive Date: 20160606
  Receipt Date: 20160606
  Transmission Date: 20160815
  Serious: No
  Sender: FDA-Public Use
  Company Number: US-ASTRAZENECA-2016SE46681

PATIENT
  Age: 13463 Day
  Sex: Female
  Weight: 133.4 kg

DRUGS (2)
  1. PROVENTIL RESCUE INHALER [Concomitant]
     Indication: ASTHMA
     Dosage: 180 UG, EVERY SIX HOURS
     Route: 055
  2. PULMICORT FLEXHALER [Suspect]
     Active Substance: BUDESONIDE
     Indication: ASTHMA
     Dosage: 360 UG , TWO TIMES A DAY
     Route: 055
     Dates: start: 20160318

REACTIONS (2)
  - Dyspnoea [Unknown]
  - Drug ineffective [Unknown]

NARRATIVE: CASE EVENT DATE: 20160318
